FAERS Safety Report 22227950 (Version 1)
Quarter: 2023Q2

REPORT INFORMATION
  Report Type: Spontaneous
  Country: JP (occurrence: JP)
  Receive Date: 20230419
  Receipt Date: 20230419
  Transmission Date: 20230721
  Serious: Yes (Life-Threatening, Hospitalization, Other)
  Sender: FDA-Public Use
  Company Number: JP-PFIZER INC-202300156355

PATIENT
  Sex: Female
  Weight: 1.872 kg

DRUGS (1)
  1. HALCION [Suspect]
     Active Substance: TRIAZOLAM
     Dosage: 0.125 MG
     Route: 064

REACTIONS (7)
  - Maternal exposure during pregnancy [Unknown]
  - Premature baby [Unknown]
  - Toxicity to various agents [Unknown]
  - Low birth weight baby [Unknown]
  - Neonatal respiratory distress syndrome [Unknown]
  - Hypotonia neonatal [Unknown]
  - Somnolence neonatal [Unknown]
